FAERS Safety Report 13276898 (Version 1)
Quarter: 2017Q1

REPORT INFORMATION
  Report Type: Spontaneous
  Country: US (occurrence: US)
  Receive Date: 20170228
  Receipt Date: 20170228
  Transmission Date: 20170428
  Serious: No
  Sender: FDA-Public Use
  Company Number: US-BAYER-2017-038549

PATIENT
  Age: 67 Year
  Sex: Female
  Weight: 67 kg

DRUGS (2)
  1. LEVOTHYROXINE. [Concomitant]
     Active Substance: LEVOTHYROXINE
     Dosage: UNK
  2. CLARITIN-D 24 HOUR [Suspect]
     Active Substance: LORATADINE\PSEUDOEPHEDRINE SULFATE
     Dosage: 1 DF, ONCE
     Route: 065
     Dates: start: 20170223, end: 20170223

REACTIONS (2)
  - Feeling jittery [Unknown]
  - Insomnia [Unknown]

NARRATIVE: CASE EVENT DATE: 20170223
